FAERS Safety Report 7738380-1 (Version None)
Quarter: 2011Q3

REPORT INFORMATION
  Report Type: 
  Country: None (occurrence: None)
  Receive Date: 20110908
  Receipt Date: 20110831
  Transmission Date: 20111222
  Serious: Yes (Life-Threatening)
  Sender: FDA-Public Use
  Company Number: JP-ASTRAZENECA-2011SE53125

PATIENT
  Age: 71 Year
  Sex: Male

DRUGS (9)
  1. ASPIRIN [Concomitant]
     Route: 048
  2. CRESTOR [Concomitant]
     Route: 048
  3. URIEF [Concomitant]
     Route: 048
  4. DEPAS [Concomitant]
     Route: 048
  5. ALLORIN [Concomitant]
     Route: 048
  6. CERNILTON [Concomitant]
     Route: 048
  7. CANDESARTAN CILEXETIL [Suspect]
     Indication: HYPERTENSION
     Route: 048
  8. OMERAP [Concomitant]
     Route: 048
  9. SENNOSIDE [Concomitant]
     Route: 048

REACTIONS (1)
  - INTERSTITIAL LUNG DISEASE [None]
